FAERS Safety Report 24090623 (Version 2)
Quarter: 2024Q3

REPORT INFORMATION
  Report Type: Spontaneous
  Country: US (occurrence: US)
  Receive Date: 20240715
  Receipt Date: 20240728
  Transmission Date: 20241017
  Serious: No
  Sender: APOTEX
  Company Number: US-APOTEX-2024AP007910

PATIENT
  Sex: Female

DRUGS (1)
  1. GABAPENTIN [Suspect]
     Active Substance: GABAPENTIN
     Indication: Product used for unknown indication
     Dosage: UNK, BID (PROBABLY ABOUT 10 TO 12 TIMES ONLY)
     Route: 065

REACTIONS (3)
  - Fear of death [Recovered/Resolved]
  - Feeling abnormal [Recovered/Resolved]
  - Somniphobia [Recovered/Resolved]
